FAERS Safety Report 6232310-X (Version None)
Quarter: 2009Q2

REPORT INFORMATION
  Report Type: 
  Country: None (occurrence: None)
  Receive Date: 20090615
  Receipt Date: 20090528
  Transmission Date: 20091009
  Serious: Yes (Other)
  Sender: FDA-Public Use
  Company Number: 2009S1004132

PATIENT
  Sex: Male

DRUGS (4)
  1. PHOSPHOSODA FLAVOR NOT SPECIFIED [Suspect]
     Indication: COLONOSCOPY
     Dosage: PO
     Route: 048
     Dates: start: 20070614, end: 20070614
  2. DIURETICS [Concomitant]
  3. ANGIOTENSIN II [Concomitant]
  4. ANTAGONISTS [Concomitant]

REACTIONS (1)
  - RENAL FAILURE CHRONIC [None]
